FAERS Safety Report 21990972 (Version 1)
Quarter: 2023Q1

REPORT INFORMATION
  Report Type: Spontaneous
  Country: US (occurrence: US)
  Receive Date: 20230214
  Receipt Date: 20230214
  Transmission Date: 20230417
  Serious: Yes (Hospitalization)
  Sender: FDA-Public Use
  Company Number: US-SANOFI-01483098

PATIENT
  Age: 74 Year
  Sex: Female

DRUGS (2)
  1. LANTUS [Suspect]
     Active Substance: INSULIN GLARGINE
     Indication: Type 2 diabetes mellitus
     Dosage: UNK
     Route: 065
  2. BYDUREON [Suspect]
     Active Substance: EXENATIDE
     Dosage: UNK

REACTIONS (4)
  - Blood glucose increased [Recovering/Resolving]
  - Hypotension [Unknown]
  - Asthenia [Unknown]
  - Dizziness [Unknown]
